FAERS Safety Report 9434980 (Version 2)
Quarter: 2013Q3

REPORT INFORMATION
  Report Type: Report from Study
  Country: BE (occurrence: BE)
  Receive Date: 20130801
  Receipt Date: 20130814
  Transmission Date: 20140515
  Serious: Yes (Hospitalization)
  Sender: FDA-Public Use
  Company Number: PHHO2013BE009422

PATIENT
  Age: 57 Year
  Sex: 0

DRUGS (4)
  1. AFINITOR [Suspect]
     Indication: BREAST CANCER METASTATIC
     Dosage: 10 MG, UNK
     Route: 048
     Dates: start: 20130514, end: 20130715
  2. EXEMESTANE [Suspect]
     Indication: BREAST CANCER METASTATIC
     Dosage: 25 MG, UNK
     Route: 048
     Dates: start: 20130514, end: 20130715
  3. TRAMADOL [Concomitant]
     Indication: CANCER PAIN
     Dosage: 37.5 MG, BID
     Route: 048
     Dates: start: 20130710, end: 20130711
  4. PARACETAMOL [Concomitant]
     Indication: CANCER PAIN
     Dosage: 325 MG, BID
     Route: 048
     Dates: start: 20130710, end: 20130711

REACTIONS (11)
  - Renal tubular necrosis [Recovered/Resolved]
  - Vomiting [Recovered/Resolved]
  - Blood creatinine abnormal [Recovered/Resolved]
  - Hyperglycaemia [Recovered/Resolved]
  - Constipation [Recovered/Resolved]
  - Polydipsia [Recovered/Resolved]
  - Polyuria [Recovered/Resolved]
  - Hypokalaemia [Recovered/Resolved]
  - Hyponatraemia [Recovered/Resolved]
  - Hypercalcaemia [Recovered/Resolved]
  - Hypophosphataemia [Recovered/Resolved]
